FAERS Safety Report 6252530-8 (Version None)
Quarter: 2009Q3

REPORT INFORMATION
  Report Type: 
  Country: None (occurrence: None)
  Receive Date: 20090701
  Receipt Date: 20070530
  Transmission Date: 20100115
  Serious: Yes (Hospitalization, Other)
  Sender: FDA-Public Use
  Company Number: US-ASTRAZENECA-2006UW21424

PATIENT
  Age: 428 Month
  Sex: Male
  Weight: 96.6 kg

DRUGS (13)
  1. SEROQUEL [Suspect]
     Indication: DEPRESSION
     Dosage: 100 TO 200 MG
     Route: 048
     Dates: start: 20000104
  2. DEPAKOTE [Concomitant]
     Dosage: 250 TO 500 MG
     Route: 048
     Dates: start: 19970828
  3. CARBATROL [Concomitant]
     Indication: HEADACHE
     Route: 048
     Dates: start: 19980429
  4. CARBATROL [Concomitant]
     Indication: NAUSEA
     Route: 048
     Dates: start: 19980429
  5. CARBATROL [Concomitant]
     Indication: VOMITING
     Route: 048
     Dates: start: 19980429
  6. DILANTIN [Concomitant]
     Indication: CONVULSION
     Route: 048
     Dates: start: 19981112
  7. ZYPREXA [Concomitant]
     Indication: POOR QUALITY SLEEP
     Route: 048
     Dates: start: 19981209
  8. TEGRETOL [Concomitant]
     Indication: CONVULSION
     Route: 048
     Dates: start: 19981209
  9. RISPERDAL [Concomitant]
     Dosage: DAILY, AS REQUIRED
     Route: 048
     Dates: start: 19990208
  10. LEXAPRO [Concomitant]
     Route: 048
     Dates: start: 20030303
  11. ABILIFY [Concomitant]
     Route: 048
     Dates: start: 20041118
  12. VALIUM [Concomitant]
     Indication: CONVULSION
     Route: 048
     Dates: start: 20051118
  13. LANTUS [Concomitant]
     Indication: DIABETES MELLITUS
     Dosage: 1000 U / 1 ML, 35 UNITS A DAY
     Dates: start: 20051118

REACTIONS (5)
  - DIABETES MELLITUS [None]
  - DIABETIC RETINOPATHY [None]
  - HYPERGLYCAEMIA [None]
  - INSULIN-REQUIRING TYPE 2 DIABETES MELLITUS [None]
  - TYPE 2 DIABETES MELLITUS [None]
